FAERS Safety Report 9535415 (Version 3)
Quarter: 2013Q4

REPORT INFORMATION
  Report Type: Spontaneous
  Country: TR (occurrence: TR)
  Receive Date: 20130918
  Receipt Date: 20131004
  Transmission Date: 20140711
  Serious: Yes (Death, Other)
  Sender: FDA-Public Use
  Company Number: TR-VERTEX PHARMACEUTICALS INC-2013-009652

PATIENT
  Age: 64 Year
  Sex: Male

DRUGS (5)
  1. INCIVO [Suspect]
     Indication: CHRONIC HEPATITIS C
     Dosage: 750 MG, UNK
     Route: 048
     Dates: start: 20130516, end: 20130702
  2. PEGINTERFERON ALFA [Suspect]
     Indication: CHRONIC HEPATITIS C
     Dosage: 180 ?G, QW
     Route: 058
     Dates: start: 20130516, end: 20130702
  3. RIBAVIRIN [Suspect]
     Indication: CHRONIC HEPATITIS C
     Dosage: 1000 MG, QD
     Route: 048
     Dates: start: 20130516
  4. RIBAVIRIN [Suspect]
     Dosage: 600 MG, UNK
     Route: 048
     Dates: end: 20130702
  5. TEFOR [Concomitant]
     Indication: GOITRE
     Dosage: UNK

REACTIONS (6)
  - Respiratory failure [Fatal]
  - Pneumonia aspiration [Fatal]
  - Pulmonary embolism [Fatal]
  - Anaemia [Unknown]
  - Asthenia [Unknown]
  - Decreased appetite [Unknown]
